FAERS Safety Report 18696661 (Version 1)
Quarter: 2021Q1

REPORT INFORMATION
  Report Type: Other
  Country: US (occurrence: US)
  Receive Date: 20210104
  Receipt Date: 20210104
  Transmission Date: 20210419
  Serious: Yes (Other)
  Sender: FDA-Public Use
  Company Number: US-ROCHE-2645168

PATIENT
  Age: 67 Year
  Sex: Female

DRUGS (4)
  1. IOHEXOL [Concomitant]
     Active Substance: IOHEXOL
     Indication: PRODUCT USED FOR UNKNOWN INDICATION
     Dosage: 100 ML OF INTRAVENOUS IOHEXOL (350 MG IODINE/ML INJECTION)
     Route: 042
  2. ACTILYSE [Suspect]
     Active Substance: ALTEPLASE
     Indication: ISCHAEMIC STROKE
     Dosage: BOLUS OF 0.09 MG/KG (8.8 MG)
     Route: 042
  3. ACTILYSE [Suspect]
     Active Substance: ALTEPLASE
     Dosage: AN INFUSION OF 0.81 MG/KG (79.1 MG) ADMINISTERED OVER 1 HOUR.
     Route: 042
  4. AMLODIPINE [Concomitant]
     Active Substance: AMLODIPINE BESYLATE
     Indication: PRODUCT USED FOR UNKNOWN INDICATION
     Route: 065

REACTIONS (1)
  - Intestinal angioedema [Recovered/Resolved]
